FAERS Safety Report 10161315 (Version 2)
Quarter: 2014Q2

REPORT INFORMATION
  Report Type: Spontaneous
  Country: US (occurrence: US)
  Receive Date: 20140509
  Receipt Date: 20140509
  Transmission Date: 20141212
  Serious: Yes (Other)
  Sender: FDA-Public Use
  Company Number: US-UCBSA-117975

PATIENT
  Sex: Female
  Weight: 53.52 kg

DRUGS (7)
  1. VIMPAT [Suspect]
     Dosage: 500MG IN AM AND 1000MG IN PM, FOR 2-3 MONTHS
  2. KEPPRA [Suspect]
     Indication: EPILEPSY
     Dosage: 500MG 2 PILLS A DAY
     Route: 048
  3. KEPPRA [Suspect]
     Indication: EPILEPSY
     Dosage: 500MG 2 IN AM 2 IN PM TAKING FOR ABOUT A YEAR
     Route: 048
  4. TOPRAMAX [Concomitant]
     Indication: EPILEPSY
     Route: 048
  5. MYSOLINE [Concomitant]
     Indication: GENERALISED TONIC-CLONIC SEIZURE
     Route: 048
  6. INDURAL [Concomitant]
     Indication: CARDIAC DISORDER
     Route: 048
  7. ASA [Concomitant]
     Indication: CEREBROVASCULAR ACCIDENT
     Route: 048

REACTIONS (5)
  - Generalised tonic-clonic seizure [Not Recovered/Not Resolved]
  - Petit mal epilepsy [Not Recovered/Not Resolved]
  - Memory impairment [Unknown]
  - Palpitations [Not Recovered/Not Resolved]
  - Overdose [Not Recovered/Not Resolved]
